FAERS Safety Report 10093514 (Version 1)
Quarter: 2014Q2

REPORT INFORMATION
  Report Type: Spontaneous
  Country: US (occurrence: US)
  Receive Date: 20140421
  Receipt Date: 20140421
  Transmission Date: 20141212
  Serious: No
  Sender: FDA-Public Use
  Company Number: US-SA-2014SA019257

PATIENT
  Age: 20 Year
  Sex: Male

DRUGS (3)
  1. ALLEGRA 24 HOUR [Suspect]
     Indication: RHINORRHOEA
     Route: 048
  2. ALLEGRA 24 HOUR [Suspect]
     Indication: SNEEZING
     Route: 048
  3. TYLENOL [Concomitant]

REACTIONS (1)
  - Chills [Not Recovered/Not Resolved]
